FAERS Safety Report 9108138 (Version 1)
Quarter: 2013Q1

REPORT INFORMATION
  Report Type: Spontaneous
  Country: US (occurrence: US)
  Receive Date: 20130221
  Receipt Date: 20130221
  Transmission Date: 20140127
  Serious: Yes (Other)
  Sender: FDA-Public Use
  Company Number: US-ELI_LILLY_AND_COMPANY-US201206000714

PATIENT
  Age: 67 None
  Sex: Female

DRUGS (2)
  1. FORTEO [Suspect]
     Indication: OSTEOPOROSIS
     Dosage: 20 UG, QD
     Dates: start: 20120518
  2. FORTEO [Suspect]
     Dosage: 20 UG, QD
     Dates: start: 20120518

REACTIONS (9)
  - Ankle fracture [Not Recovered/Not Resolved]
  - Foot deformity [Unknown]
  - Tooth fracture [Unknown]
  - Injection site bruising [Unknown]
  - Muscle spasms [Recovered/Resolved]
  - Back pain [Not Recovered/Not Resolved]
  - Pain [Recovered/Resolved]
  - Incontinence [Not Recovered/Not Resolved]
  - Pain in extremity [Unknown]
